FAERS Safety Report 7382223-5 (Version None)
Quarter: 2011Q1

REPORT INFORMATION
  Report Type: 
  Country: None (occurrence: None)
  Receive Date: 20110329
  Receipt Date: 20110325
  Transmission Date: 20110831
  Serious: Yes (Other)
  Sender: FDA-Public Use
  Company Number: CA-ABBOTT-11P-028-0714338-00

PATIENT
  Age: 31 Year
  Sex: Female
  Weight: 52.664 kg

DRUGS (5)
  1. HUMIRA [Suspect]
  2. HUMIRA [Suspect]
     Indication: CROHN'S DISEASE
     Route: 058
     Dates: end: 20081001
  3. CALCIUM [Concomitant]
     Indication: SUPPLEMENTATION THERAPY
  4. URSODIOL [Concomitant]
     Indication: CHOLANGITIS SCLEROSING
  5. VITAMIN D [Concomitant]
     Indication: SUPPLEMENTATION THERAPY

REACTIONS (1)
  - ABORTION SPONTANEOUS [None]
